FAERS Safety Report 6254336-2 (Version None)
Quarter: 2009Q3

REPORT INFORMATION
  Report Type: 
  Country: None (occurrence: None)
  Receive Date: 20090702
  Receipt Date: 20090622
  Transmission Date: 20100115
  Serious: Yes (Other)
  Sender: FDA-Public Use
  Company Number: US-BIOGENIDEC-2009BI019181

PATIENT
  Age: 74 Year
  Sex: Female

DRUGS (2)
  1. AVONEX [Suspect]
     Indication: MULTIPLE SCLEROSIS
     Route: 030
     Dates: start: 20020308, end: 20080701
  2. AVONEX [Suspect]
     Route: 030
     Dates: start: 20081101

REACTIONS (2)
  - BREAST CANCER [None]
  - INFLUENZA LIKE ILLNESS [None]
